FAERS Safety Report 8225556-2 (Version None)
Quarter: 2012Q1

REPORT INFORMATION
  Report Type: 
  Country: None (occurrence: None)
  Receive Date: 20120321
  Receipt Date: 20120313
  Transmission Date: 20120608
  Serious: Yes (Other)
  Sender: FDA-Public Use
  Company Number: PHHY2012CA019754

PATIENT
  Age: 84 Year
  Sex: Male

DRUGS (3)
  1. RISPERIDONE [Suspect]
     Indication: SEXUALLY INAPPROPRIATE BEHAVIOUR
     Dosage: 0.5-1 MG
  2. MEDROXYPROGESTERONE [Suspect]
     Indication: SEXUALLY INAPPROPRIATE BEHAVIOUR
     Dosage: 100-200 MG, UNK
  3. CITALOPRAM HYDROBROMIDE [Concomitant]
     Indication: SEXUALLY INAPPROPRIATE BEHAVIOUR
     Dosage: 10-40 MG, 10 WEEKS

REACTIONS (2)
  - SEXUALLY INAPPROPRIATE BEHAVIOUR [None]
  - CONDITION AGGRAVATED [None]
